FAERS Safety Report 5205242-3 (Version None)
Quarter: 2007Q1

REPORT INFORMATION
  Report Type: 
  Country: None (occurrence: None)
  Receive Date: 20070108
  Receipt Date: 20061229
  Transmission Date: 20070707
  Serious: Yes (Life-Threatening, Hospitalization)
  Sender: FDA-Public Use
  Company Number: 2007SP000000

PATIENT
  Age: 75 Year
  Sex: Male

DRUGS (3)
  1. TEMODAL [Suspect]
     Indication: GLIOBLASTOMA
     Dosage: 265 MG; QD; PO
     Route: 048
     Dates: start: 20060927, end: 20061228
  2. FORTECORTIN (DEXAMETHASONE) [Suspect]
     Indication: GLIOBLASTOMA
  3. FORTECORTIN /00016001/ [Concomitant]

REACTIONS (1)
  - SEPTIC SHOCK [None]
